FAERS Safety Report 23201194 (Version 1)
Quarter: 2023Q4

REPORT INFORMATION
  Report Type: Spontaneous
  Country: FR (occurrence: FR)
  Receive Date: 20231118
  Receipt Date: 20231118
  Transmission Date: 20240110
  Serious: Yes (Other)
  Sender: FDA-Public Use
  Company Number: None

PATIENT
  Age: 13 Year
  Sex: Male

DRUGS (1)
  1. RISPERIDONE [Suspect]
     Active Substance: RISPERIDONE
     Indication: Product administration error
     Dosage: RISPERIDONE TEVA SANTE 1 MG/ML
     Dates: start: 20230901, end: 20230901

REACTIONS (3)
  - Ventricular tachyarrhythmia [Not Recovered/Not Resolved]
  - Product administration error [Recovered/Resolved]
  - Dyskinesia [Not Recovered/Not Resolved]

NARRATIVE: CASE EVENT DATE: 20230901
